FAERS Safety Report 6205974-4 (Version None)
Quarter: 2009Q2

REPORT INFORMATION
  Report Type: 
  Country: None (occurrence: None)
  Receive Date: 20090527
  Receipt Date: 20090527
  Transmission Date: 20091009
  Serious: No
  Sender: FDA-Public Use
  Company Number: None

PATIENT
  Age: 73 Year
  Sex: Male
  Weight: 75.89 kg

DRUGS (15)
  1. WARFARIN SODIUM [Suspect]
     Indication: HEART VALVE REPLACEMENT
     Dosage: 5 MG EVERY DAY PO
     Route: 048
     Dates: start: 20071214, end: 20090421
  2. FLUOXETINE HCL [Suspect]
     Indication: DEPRESSION
     Dosage: 10 MG EVERY DAY PO
     Route: 048
     Dates: start: 20080103
  3. ACCU-CHEK COMFORT CV(GLUCOSE) TEST STRIP [Concomitant]
  4. DONEPEZIL HCL [Concomitant]
  5. FLUOXETINE HCL [Concomitant]
  6. FUROSEMIDE [Concomitant]
  7. HUMULIN N [Concomitant]
  8. ISOSORBIDE MONONITRATE [Concomitant]
  9. LISINOPRIL [Concomitant]
  10. METOPROLOL SUCCINATE [Concomitant]
  11. OMEPRAZOLE [Concomitant]
  12. OXYBUTYNIN [Concomitant]
  13. SIMVASTATIN [Concomitant]
  14. TERAZOSIN HCL [Concomitant]
  15. COUMADIN [Concomitant]

REACTIONS (4)
  - FEELING ABNORMAL [None]
  - HAEMATEMESIS [None]
  - HYPOTENSION [None]
  - INTERNATIONAL NORMALISED RATIO INCREASED [None]
